FAERS Safety Report 5020484-8 (Version None)
Quarter: 2006Q2

REPORT INFORMATION
  Report Type: 
  Country: None (occurrence: None)
  Receive Date: 20060607
  Receipt Date: 20060526
  Transmission Date: 20061013
  Serious: Yes (Hospitalization)
  Sender: FDA-Public Use
  Company Number: US-BRISTOL-MYERS SQUIBB COMPANY-13392774

PATIENT
  Age: 79 Year
  Sex: Female

DRUGS (11)
  1. CARBOPLATIN [Suspect]
     Indication: COLORECTAL CANCER METASTATIC
     Route: 042
     Dates: start: 20060517, end: 20060517
  2. DOCETAXEL [Suspect]
     Indication: COLORECTAL CANCER METASTATIC
     Route: 042
     Dates: start: 20060517, end: 20060517
  3. VICODIN [Concomitant]
     Dates: start: 20060428
  4. VICODIN [Concomitant]
     Dates: start: 20060428
  5. XANAX [Concomitant]
     Dates: start: 20060512
  6. PRILOSEC [Concomitant]
     Dates: start: 20060428
  7. FOSAMAX [Concomitant]
     Dates: start: 20030101
  8. GLUCOPHAGE [Concomitant]
     Dates: start: 20020101
  9. LEVAQUIN [Concomitant]
     Dates: start: 20060428, end: 20060505
  10. MEVACOR [Concomitant]
     Dates: start: 20020101
  11. MONOPRIL [Concomitant]
     Dates: start: 20020101

REACTIONS (1)
  - DEHYDRATION [None]
